FAERS Safety Report 12350665 (Version 4)
Quarter: 2016Q3

REPORT INFORMATION
  Report Type: Spontaneous
  Country: CA (occurrence: CA)
  Receive Date: 20160510
  Receipt Date: 20160913
  Transmission Date: 20161109
  Serious: Yes (Disabling, Other)
  Sender: FDA-Public Use
  Company Number: CA-CELGENEUS-CAN-2016047883

PATIENT
  Age: 63 Year
  Sex: Female

DRUGS (31)
  1. OTEZLA [Suspect]
     Active Substance: APREMILAST
     Indication: PSORIASIS
     Dosage: 60 MILLIGRAM
     Route: 048
     Dates: start: 20160422
  2. LOTEMAX [Concomitant]
     Active Substance: LOTEPREDNOL ETABONATE
     Indication: EPISCLERITIS
     Route: 065
     Dates: start: 20151020
  3. CLOBETASOL [Concomitant]
     Active Substance: CLOBETASOL
     Indication: BACK PAIN
     Route: 065
     Dates: start: 20150513
  4. ELOCON [Concomitant]
     Active Substance: MOMETASONE FUROATE
     Indication: BACK PAIN
  5. DRYSOL [Concomitant]
     Active Substance: ALUMINUM CHLORIDE
     Indication: BACK PAIN
  6. ARTIFICIAL TEARS [Concomitant]
     Active Substance: GLYCERIN\HYPROMELLOSES\POLYETHYLENE GLYCOL 400
     Dosage: 1 MILLIGRAM
     Route: 065
     Dates: start: 20150513
  7. NORTRIPTYLINE [Concomitant]
     Active Substance: NORTRIPTYLINE
     Indication: PRODUCT USED FOR UNKNOWN INDICATION
     Route: 065
  8. THYROXINE [Concomitant]
     Active Substance: LEVOTHYROXINE
     Indication: PRODUCT USED FOR UNKNOWN INDICATION
     Route: 065
  9. CITALOPRAM [Concomitant]
     Active Substance: CITALOPRAM HYDROBROMIDE
     Indication: PRODUCT USED FOR UNKNOWN INDICATION
     Route: 065
  10. DITROPAN XL [Concomitant]
     Active Substance: OXYBUTYNIN CHLORIDE
     Indication: PRODUCT USED FOR UNKNOWN INDICATION
     Route: 065
     Dates: start: 20160429
  11. MORPHINE [Concomitant]
     Active Substance: MORPHINE
     Indication: NECK PAIN
     Dosage: 20 MILLIGRAM
     Route: 065
     Dates: start: 201301
  12. CANESTEN [Concomitant]
     Active Substance: CLOTRIMAZOLE
     Indication: PSORIASIS
     Route: 065
     Dates: start: 20150811
  13. ASPIRIN. [Concomitant]
     Active Substance: ASPIRIN
     Indication: ROUTINE HEALTH MAINTENANCE
     Route: 065
     Dates: start: 20120919
  14. CLOBETASOL [Concomitant]
     Active Substance: CLOBETASOL
     Indication: PSORIASIS
     Route: 065
     Dates: start: 20120807
  15. ELOCON [Concomitant]
     Active Substance: MOMETASONE FUROATE
     Indication: PSORIASIS
     Route: 065
     Dates: start: 20140218
  16. DOVONEX [Concomitant]
     Active Substance: CALCIPOTRIENE
     Indication: PSORIASIS
     Route: 065
     Dates: start: 20141016
  17. FUCIDIN [Concomitant]
     Active Substance: FUSIDIC ACID
     Indication: PRODUCT USED FOR UNKNOWN INDICATION
     Route: 065
     Dates: start: 20141016
  18. CANESTEN [Concomitant]
     Active Substance: CLOTRIMAZOLE
     Route: 065
     Dates: start: 20150513
  19. LEVOTHYROXINE. [Concomitant]
     Active Substance: LEVOTHYROXINE
     Indication: HYPOTHYROIDISM
     Route: 065
     Dates: start: 201506
  20. DOVONEX [Concomitant]
     Active Substance: CALCIPOTRIENE
     Indication: BACK PAIN
  21. PRESERVISION [Concomitant]
     Active Substance: MINERALS\VITAMINS
     Indication: PRODUCT USED FOR UNKNOWN INDICATION
     Route: 065
  22. DITROPAN XL [Concomitant]
     Active Substance: OXYBUTYNIN CHLORIDE
     Indication: HYPERHIDROSIS
  23. MORPHINE [Concomitant]
     Active Substance: MORPHINE
     Indication: BACK PAIN
  24. DRYSOL [Concomitant]
     Active Substance: ALUMINUM CHLORIDE
     Indication: HYPERHIDROSIS
     Route: 065
     Dates: start: 20130919
  25. FUCIDIN [Concomitant]
     Active Substance: FUSIDIC ACID
     Indication: BACK PAIN
  26. BETADERM [Concomitant]
     Active Substance: BETAMETHASONE VALERATE
     Indication: PSORIASIS
     Route: 065
     Dates: start: 20150811
  27. BETADERM [Concomitant]
     Active Substance: BETAMETHASONE VALERATE
     Dosage: .25 MILLIGRAM
     Route: 065
     Dates: start: 20150513
  28. NORTRIPTYLINE [Concomitant]
     Active Substance: NORTRIPTYLINE
     Route: 065
     Dates: start: 20150513
  29. CITALOPRAM [Concomitant]
     Active Substance: CITALOPRAM HYDROBROMIDE
     Dosage: .05 PERCENT
     Route: 065
     Dates: start: 20150513
  30. CELEXA [Concomitant]
     Active Substance: CITALOPRAM HYDROBROMIDE
     Indication: DEPRESSION
     Route: 065
     Dates: start: 201506
  31. ARTIFICIAL TEARS [Concomitant]
     Active Substance: GLYCERIN\HYPROMELLOSES\POLYETHYLENE GLYCOL 400
     Indication: DRY EYE
     Dosage: 40.5 MILLIGRAM
     Route: 065
     Dates: start: 20150421

REACTIONS (11)
  - Malaise [Unknown]
  - Diarrhoea [Unknown]
  - Nail discolouration [Unknown]
  - Hot flush [Unknown]
  - Ingrowing nail [Unknown]
  - Onychoclasis [Unknown]
  - Peripheral swelling [Unknown]
  - Lymphoma [Not Recovered/Not Resolved]
  - Gait disturbance [Unknown]
  - Headache [Unknown]
  - Lymphopenia [Unknown]

NARRATIVE: CASE EVENT DATE: 2016
